FAERS Safety Report 23162478 (Version 1)
Quarter: 2023Q4

REPORT INFORMATION
  Report Type: Spontaneous
  Country: FR (occurrence: FR)
  Receive Date: 20231109
  Receipt Date: 20231109
  Transmission Date: 20240110
  Serious: Yes (Death, Other)
  Sender: FDA-Public Use
  Company Number: FR-AFSSAPS-CN2023000992

PATIENT
  Age: 28 Year
  Sex: Male
  Weight: 64 kg

DRUGS (8)
  1. CLOZAPINE [Suspect]
     Active Substance: CLOZAPINE
     Indication: Schizophrenia
     Dosage: 125 MILLIGRAM, ONCE A DAY (0.0.5*25MG)
     Route: 048
     Dates: end: 20230819
  2. QUETIAPINE [Suspect]
     Active Substance: QUETIAPINE
     Indication: Schizophrenia
     Dosage: 300 MILLIGRAM, ONCE A DAY (0.0.300MGLP)
     Route: 048
     Dates: end: 20230818
  3. HALOPERIDOL [Suspect]
     Active Substance: HALOPERIDOL
     Indication: Schizophrenia
     Dosage: 15 MILLIGRAM, ONCE A DAY (5MG-0-10MG)
     Route: 048
     Dates: end: 20230819
  4. TROPATEPINE HYDROCHLORIDE [Suspect]
     Active Substance: TROPATEPINE HYDROCHLORIDE
     Indication: Parkinsonism
     Dosage: 20 MILLIGRAM, ONCE A DAY (10MG.0.10MG)
     Route: 048
  5. LOXAPINE [Suspect]
     Active Substance: LOXAPINE
     Indication: Schizophrenia
     Dosage: 50 MILLIGRAM, ONCE A DAY 1.0.0
     Route: 048
     Dates: end: 20230818
  6. POLYETHYLENE GLYCOLS [Concomitant]
     Active Substance: POLYETHYLENE GLYCOLS
     Indication: Constipation
     Dosage: 2 DOSAGE FORM, ONCE A DAY
     Route: 048
  7. CARBIMAZOLE [Concomitant]
     Active Substance: CARBIMAZOLE
     Indication: Graves^ disease
     Dosage: 20 MILLIGRAM, ONCE A DAY 1.0.0
     Route: 048
  8. PROPRANOLOL [Concomitant]
     Active Substance: PROPRANOLOL HYDROCHLORIDE
     Indication: Graves^ disease
     Dosage: 40 MILLIGRAM, ONCE A DAY 1.0.0
     Route: 048

REACTIONS (1)
  - Intestinal obstruction [Fatal]

NARRATIVE: CASE EVENT DATE: 20230820
